FAERS Safety Report 10948104 (Version 1)
Quarter: 2015Q1

REPORT INFORMATION
  Report Type: Spontaneous
  Country: MY (occurrence: MY)
  Receive Date: 20150324
  Receipt Date: 20150324
  Transmission Date: 20150721
  Serious: Yes (Hospitalization)
  Sender: FDA-Public Use
  Company Number: MY-AUROBINDO-AUR-APL-2015-02433

PATIENT
  Age: 31 Year
  Sex: Male

DRUGS (2)
  1. LAMIVUDINE. [Suspect]
     Active Substance: LAMIVUDINE
     Indication: ANTIVIRAL TREATMENT
     Dosage: 100 MG, DAILY
     Route: 048
  2. LAMIVUDINE. [Suspect]
     Active Substance: LAMIVUDINE
     Indication: HEPATITIS B

REACTIONS (19)
  - Blood creatine phosphokinase increased [Recovering/Resolving]
  - Thrombocytopenia [Recovering/Resolving]
  - Rhabdomyolysis [Recovering/Resolving]
  - White blood cell disorder [Recovering/Resolving]
  - Alanine aminotransferase increased [Recovering/Resolving]
  - Aspartate aminotransferase increased [Recovering/Resolving]
  - Blood albumin abnormal [Recovering/Resolving]
  - Blood urea abnormal [Recovering/Resolving]
  - Renal impairment [Recovering/Resolving]
  - Hyperkalaemia [Recovering/Resolving]
  - Electrocardiogram T wave inversion [Recovering/Resolving]
  - Metabolic disorder [Recovering/Resolving]
  - Haemoglobin abnormal [Recovering/Resolving]
  - Hepatic function abnormal [Recovering/Resolving]
  - Myalgia [Recovering/Resolving]
  - Coagulation test abnormal [Recovering/Resolving]
  - Blood bilirubin abnormal [Recovering/Resolving]
  - Peripheral swelling [Recovering/Resolving]
  - Blood creatinine abnormal [Recovering/Resolving]
